FAERS Safety Report 17638315 (Version 1)
Quarter: 2020Q2

REPORT INFORMATION
  Report Type: Spontaneous
  Country: FR (occurrence: FR)
  Receive Date: 20200407
  Receipt Date: 20200407
  Transmission Date: 20200713
  Serious: Yes (Other)
  Sender: FDA-Public Use
  Company Number: FR-GLAXOSMITHKLINE-FR2020059490

PATIENT
  Age: 17 Year
  Sex: Female
  Weight: 55 kg

DRUGS (1)
  1. VENTOLINE [Suspect]
     Active Substance: ALBUTEROL
     Indication: ASTHMA EXERCISE INDUCED
     Dosage: 2 DF
     Route: 055
     Dates: start: 20200323, end: 20200323

REACTIONS (6)
  - Hallucination, auditory [Recovered/Resolved]
  - Muscle twitching [Recovered/Resolved]
  - Tachypnoea [Recovered/Resolved]
  - Paraesthesia [Recovered/Resolved]
  - Vertigo [Recovered/Resolved]
  - Palpitations [Recovered/Resolved]

NARRATIVE: CASE EVENT DATE: 20200323
